FAERS Safety Report 9981297 (Version 1)
Quarter: 2014Q1

REPORT INFORMATION
  Report Type: Spontaneous
  Country: US (occurrence: US)
  Receive Date: 20140307
  Receipt Date: 20140307
  Transmission Date: 20141002
  Serious: Yes (Other)
  Sender: FDA-Public Use
  Company Number: US-PERRIGO-14US002257

PATIENT
  Age: 55 Year
  Sex: Female
  Weight: 68.27 kg

DRUGS (5)
  1. NAPROXEN SODIUM [Suspect]
     Indication: PRODUCT USED FOR UNKNOWN INDICATION
     Dosage: UNK, UNK
     Route: 048
     Dates: start: 201309
  2. LITHIUM [Suspect]
     Indication: BIPOLAR I DISORDER
     Dosage: 900 MG, QHS
     Route: 048
     Dates: start: 1983
  3. SYNTHROID [Concomitant]
     Indication: THYROID DISORDER
     Dosage: 150 ?G, QD
     Route: 048
     Dates: start: 2003
  4. TRAZODONE [Concomitant]
     Indication: BIPOLAR I DISORDER
     Dosage: UNK, UNK
     Route: 048
     Dates: start: 1983
  5. DIAZEPAM [Concomitant]
     Indication: PRODUCT USED FOR UNKNOWN INDICATION
     Dosage: 5 MG, Q8H
     Route: 048

REACTIONS (7)
  - Myocardial infarction [Unknown]
  - Drug interaction [Unknown]
  - Pain [Unknown]
  - Headache [Unknown]
  - Hyperhidrosis [Unknown]
  - Vomiting [Unknown]
  - Chest pain [Unknown]
